FAERS Safety Report 7982565 (Version 2)
Quarter: 2012Q4

REPORT INFORMATION
  Report Type: 
  Country: CA (occurrence: CA)
  Receive Date: 20110609
  Receipt Date: 20121101
  Transmission Date: 20130627
  Serious: Yes (Death, Hospitalization, Other)
  Sender: FDA-Public Use
  Company Number: PHMT2006CA00924

PATIENT
  Age: 68 Year
  Sex: Female

DRUGS (4)
  1. SANDOSTATIN LAR [Suspect]
     Indication: DIARRHOEA
     Dosage: 20 mg, once a month
     Dates: start: 20060207
  2. CHEMOTHERAPEUTICS,OTHER [Concomitant]
     Dates: start: 20051101
  3. CHEMOTHERAPEUTICS,OTHER [Concomitant]
     Dates: start: 20060425
  4. CHEMOTHERAPEUTICS,OTHER [Concomitant]
     Dates: start: 20061004

REACTIONS (15)
  - Death [Fatal]
  - Rectal perforation [Unknown]
  - Vaginal perforation [Unknown]
  - White blood cell count decreased [Unknown]
  - Blood pressure diastolic decreased [Unknown]
  - Heart rate decreased [Unknown]
  - Feeling abnormal [Unknown]
  - Malaise [Unknown]
  - Weight decreased [Unknown]
  - Urine abnormality [Unknown]
  - Weight increased [Unknown]
  - Fatigue [Unknown]
  - Blood glucose increased [Unknown]
  - Diarrhoea [Unknown]
  - Heart rate increased [Unknown]
